FAERS Safety Report 8880890 (Version 1)
Quarter: 2012Q4

REPORT INFORMATION
  Report Type: 
  Country: US (occurrence: US)
  Receive Date: 20121101
  Receipt Date: 20121101
  Transmission Date: 20130627
  Serious: Yes (Death)
  Sender: FDA-Public Use
  Company Number: US-CELGENEUS-163-21880-12103626

PATIENT
  Age: 73 Year
  Sex: Male
  Weight: 146 kg

DRUGS (7)
  1. REVLIMID [Suspect]
     Indication: MULTIPLE MYELOMA
     Dosage: 5 Milligram
     Route: 048
     Dates: start: 20120723
  2. REVLIMID [Suspect]
     Route: 048
     Dates: start: 20120620
  3. REVLIMID [Suspect]
     Route: 048
     Dates: start: 201208
  4. FOLIC ACID [Concomitant]
     Indication: DRUG USE FOR UNKNOWN INDICATION
     Route: 065
  5. ACYCLOVIR [Concomitant]
     Indication: DRUG USE FOR UNKNOWN INDICATION
     Route: 065
  6. DEXAMETHASONE [Concomitant]
     Indication: DRUG USE FOR UNKNOWN INDICATION
     Route: 065
  7. BLOOD [Concomitant]
     Indication: HAEMOGLOBIN LOW
     Route: 065

REACTIONS (1)
  - Death [Fatal]
